FAERS Safety Report 12188612 (Version 1)
Quarter: 2016Q1

REPORT INFORMATION
  Report Type: Spontaneous
  Country: US (occurrence: US)
  Receive Date: 20160317
  Receipt Date: 20160317
  Transmission Date: 20160526
  Serious: Yes (Death)
  Sender: FDA-Public Use
  Company Number: US-LUNDBECK-DKLU2011210

PATIENT
  Age: 4 Year
  Sex: Female

DRUGS (1)
  1. SABRIL [Suspect]
     Active Substance: VIGABATRIN
     Indication: ATRIAL FIBRILLATION
     Route: 048
     Dates: start: 20130920

REACTIONS (1)
  - Death [Fatal]

NARRATIVE: CASE EVENT DATE: 20160309
